FAERS Safety Report 5411816-7 (Version None)
Quarter: 2007Q3

REPORT INFORMATION
  Report Type: 
  Country: None (occurrence: None)
  Receive Date: 20070713
  Receipt Date: 20070319
  Transmission Date: 20080115
  Serious: No
  Sender: FDA-Public Use
  Company Number: 2007SP000989

PATIENT
  Age: 49 Year
  Sex: Male
  Weight: 108.8633 kg

DRUGS (8)
  1. LUNESTA [Suspect]
     Indication: INSOMNIA
     Dosage: 2 MG;HS;ORAL ; 4 MG;ORAL
     Route: 048
     Dates: start: 20070301
  2. LUNESTA [Suspect]
     Indication: INSOMNIA
     Dosage: 2 MG;HS;ORAL ; 4 MG;ORAL
     Route: 048
     Dates: start: 20070313
  3. TOPAMAX [Concomitant]
  4. ATIVAN [Concomitant]
  5. PRILOSEC [Concomitant]
  6. STOOL SOFTENER [Concomitant]
  7. EYE DROPS [Concomitant]
  8. CLARITIN [Concomitant]

REACTIONS (2)
  - DRUG INEFFECTIVE [None]
  - MIDDLE INSOMNIA [None]
